APPROVED DRUG PRODUCT: DOCETAXEL
Active Ingredient: DOCETAXEL
Strength: 80MG/4ML (20MG/ML)
Dosage Form/Route: INJECTABLE;INJECTION
Application: A204193 | Product #002 | TE Code: AP
Applicant: DR REDDYS LABORATORIES LTD
Approved: Nov 5, 2014 | RLD: No | RS: No | Type: RX